FAERS Safety Report 8304323-5 (Version None)
Quarter: 2012Q2

REPORT INFORMATION
  Report Type: 
  Country: None (occurrence: None)
  Receive Date: 20120423
  Receipt Date: 20120423
  Transmission Date: 20120825
  Serious: Yes (Other)
  Sender: FDA-Public Use
  Company Number: None

PATIENT
  Age: 43 Year
  Sex: Female
  Weight: 83.461 kg

DRUGS (1)
  1. EPINEPHRINE [Suspect]
     Indication: OEDEMA
     Dosage: ONE SYRINGE
     Dates: start: 20120407, end: 20120407

REACTIONS (5)
  - PARAESTHESIA [None]
  - BRONCHITIS [None]
  - HYPOAESTHESIA [None]
  - ANGINA PECTORIS [None]
  - PNEUMONIA [None]
